FAERS Safety Report 14618985 (Version 2)
Quarter: 2018Q2

REPORT INFORMATION
  Report Type: Report from Study
  Country: US (occurrence: US)
  Receive Date: 20180309
  Receipt Date: 20180507
  Transmission Date: 20180711
  Serious: Yes (Death, Other)
  Sender: FDA-Public Use
  Company Number: US-REGENERON PHARMACEUTICALS, INC.-2018-16420

PATIENT

DRUGS (2)
  1. EYLEA [Suspect]
     Active Substance: AFLIBERCEPT
     Indication: DIABETIC RETINOPATHY
     Dosage: OU, 2 MG/0.05 ML, Q4W
     Route: 031
     Dates: start: 20160714
  2. EYLEA [Suspect]
     Active Substance: AFLIBERCEPT
     Dosage: OU, 2 MG/0.05 ML, Q4W, LAST INJECTION
     Route: 031
     Dates: start: 20171115, end: 20171115

REACTIONS (1)
  - Death [Fatal]

NARRATIVE: CASE EVENT DATE: 20180222
